FAERS Safety Report 6687221-2 (Version None)
Quarter: 2010Q2

REPORT INFORMATION
  Report Type: 
  Country: None (occurrence: None)
  Receive Date: 20100419
  Receipt Date: 20091204
  Transmission Date: 20101027
  Serious: No
  Sender: FDA-Public Use
  Company Number: US-ABBOTT-09P-163-0613348-00

PATIENT
  Sex: Female
  Weight: 72.64 kg

DRUGS (2)
  1. ZEMPLAR [Suspect]
     Indication: RENAL DISORDER
     Dates: start: 20070101, end: 20091001
  2. ZEMPLAR [Suspect]
     Dates: start: 20091001

REACTIONS (6)
  - BLOOD PRESSURE INCREASED [None]
  - DIARRHOEA [None]
  - DIZZINESS [None]
  - FATIGUE [None]
  - NAUSEA [None]
  - PRESYNCOPE [None]
